FAERS Safety Report 23406604 (Version 2)
Quarter: 2024Q1

REPORT INFORMATION
  Report Type: Spontaneous
  Country: GR (occurrence: GR)
  Receive Date: 20240116
  Receipt Date: 20240212
  Transmission Date: 20240410
  Serious: Yes (Hospitalization, Other)
  Sender: FDA-Public Use
  Company Number: None

PATIENT
  Age: 54 Year
  Sex: Female

DRUGS (36)
  1. FLUOROURACIL [Suspect]
     Active Substance: FLUOROURACIL
     Indication: Invasive ductal breast carcinoma
     Dosage: 1 DOSAGE FORM, CYCLIC
     Route: 065
  2. FLUOROURACIL [Suspect]
     Active Substance: FLUOROURACIL
     Dosage: UNK ( QCYCLE)
     Route: 065
  3. BEVACIZUMAB [Suspect]
     Active Substance: BEVACIZUMAB
     Indication: Invasive ductal breast carcinoma
     Dosage: 1 DOSAGE FORM, CYCLIC
     Route: 065
     Dates: start: 2008, end: 2008
  4. BEVACIZUMAB [Suspect]
     Active Substance: BEVACIZUMAB
     Indication: Metastases to bone
     Dosage: UNK (QCYCLE)
     Route: 065
     Dates: start: 2008
  5. CAPECITABINE [Suspect]
     Active Substance: CAPECITABINE
     Indication: Invasive ductal breast carcinoma
     Dosage: 1 DOSAGE FORM, CYCLIC
     Route: 042
     Dates: start: 2008, end: 2008
  6. CAPECITABINE [Suspect]
     Active Substance: CAPECITABINE
     Dosage: UNK, QCYCLE
     Route: 065
     Dates: start: 2008
  7. CYCLOPHOSPHAMIDE [Suspect]
     Active Substance: CYCLOPHOSPHAMIDE
     Indication: Invasive ductal breast carcinoma
     Dosage: 1 DOSAGE FORM, CYCLIC
     Route: 065
  8. CYCLOPHOSPHAMIDE [Suspect]
     Active Substance: CYCLOPHOSPHAMIDE
     Dosage: UNK, QCYCLE
     Route: 065
  9. CARBOPLATIN [Suspect]
     Active Substance: CARBOPLATIN
     Indication: Invasive ductal breast carcinoma
     Dosage: 1 DOSAGE FORM, CYCLIC
     Route: 065
     Dates: end: 2008
  10. CARBOPLATIN [Suspect]
     Active Substance: CARBOPLATIN
     Indication: Metastases to bone
     Dosage: UNK
     Route: 065
  11. CARBOPLATIN [Suspect]
     Active Substance: CARBOPLATIN
     Dosage: UNK, (QCYCLIC)
     Route: 065
  12. DOCETAXEL [Suspect]
     Active Substance: DOCETAXEL\DOCETAXEL ANHYDROUS
     Indication: Invasive ductal breast carcinoma
     Dosage: 1 DOSAGE FORM, CYCLIC
     Route: 042
     Dates: start: 2008, end: 2008
  13. DOCETAXEL [Suspect]
     Active Substance: DOCETAXEL\DOCETAXEL ANHYDROUS
     Indication: Metastases to bone
     Dosage: UNK, QCYCLE
     Route: 065
     Dates: start: 2008
  14. ERIBULIN [Suspect]
     Active Substance: ERIBULIN
     Indication: Invasive ductal breast carcinoma
     Dosage: 1 DOSAGE FORM, CYCLIC
     Route: 042
     Dates: start: 2008, end: 2008
  15. ERIBULIN [Suspect]
     Active Substance: ERIBULIN
     Indication: Metastases to bone
     Dosage: UNK
     Route: 065
  16. ERIBULIN [Suspect]
     Active Substance: ERIBULIN
     Dosage: UNK UNK QCYCLE
     Route: 042
     Dates: start: 2008
  17. GEMCITABINE [Suspect]
     Active Substance: GEMCITABINE
     Indication: Invasive ductal breast carcinoma
     Dosage: 1 DOSAGE FORM, CYCLIC
     Route: 065
     Dates: start: 2008, end: 2008
  18. GEMCITABINE [Suspect]
     Active Substance: GEMCITABINE
     Dosage: UNK
     Route: 065
  19. GEMCITABINE [Suspect]
     Active Substance: GEMCITABINE
     Indication: Metastases to bone
     Dosage: UNK, QCYCLE
     Route: 065
     Dates: start: 2008
  20. INIPARIB [Suspect]
     Active Substance: INIPARIB
     Indication: Invasive ductal breast carcinoma
     Dosage: 1 DOSAGE FORM, CYCLIC
     Route: 042
     Dates: start: 2008, end: 2008
  21. INIPARIB [Suspect]
     Active Substance: INIPARIB
     Dosage: UNK
     Route: 065
  22. INIPARIB [Suspect]
     Active Substance: INIPARIB
     Indication: Metastases to bone
     Dosage: UNK  (QCYCLE)
     Route: 065
  23. DOXORUBICIN HYDROCHLORIDE [Suspect]
     Active Substance: DOXORUBICIN HYDROCHLORIDE
     Indication: Invasive ductal breast carcinoma
     Dosage: UNK
     Route: 065
     Dates: start: 2008, end: 2008
  24. DOXORUBICIN HYDROCHLORIDE [Suspect]
     Active Substance: DOXORUBICIN HYDROCHLORIDE
     Dosage: UNK
     Route: 065
  25. DOXORUBICIN HYDROCHLORIDE [Suspect]
     Active Substance: DOXORUBICIN HYDROCHLORIDE
     Indication: Metastases to bone
     Dosage: UNK (QCYCLE)
     Route: 048
     Dates: start: 2008
  26. NOVANTRONE [Suspect]
     Active Substance: MITOXANTRONE HYDROCHLORIDE
     Indication: Invasive ductal breast carcinoma
     Dosage: 1 DOSAGE FORM, CYCLIC
     Route: 065
  27. NOVANTRONE [Suspect]
     Active Substance: MITOXANTRONE HYDROCHLORIDE
     Dosage: UNK
     Route: 065
  28. NOVANTRONE [Suspect]
     Active Substance: MITOXANTRONE HYDROCHLORIDE
     Dosage: UNK, QCYCLE
     Route: 065
  29. PACLITAXEL [Suspect]
     Active Substance: PACLITAXEL
     Indication: Invasive ductal breast carcinoma
     Dosage: 1 DOSAGE FORM, CYCLIC
     Route: 065
     Dates: start: 2008, end: 2008
  30. PACLITAXEL [Suspect]
     Active Substance: PACLITAXEL
     Dosage: UNK, QCYCLE
     Route: 065
     Dates: start: 2008
  31. VINORELBINE [Suspect]
     Active Substance: VINORELBINE TARTRATE
     Indication: Invasive ductal breast carcinoma
     Dosage: 1 DOSAGE FORM, CYCLIC
     Route: 065
     Dates: start: 2008, end: 2008
  32. VINORELBINE [Suspect]
     Active Substance: VINORELBINE TARTRATE
     Indication: Metastases to bone
     Dosage: UNK ( QCYCLE)
     Route: 065
     Dates: start: 2008
  33. ZOLEDRONIC ACID [Suspect]
     Active Substance: ZOLEDRONIC ACID
     Indication: Metastases to bone
     Dosage: 1 DOSAGE FORM, CYCLIC
     Route: 042
     Dates: start: 2008, end: 2008
  34. ZOLEDRONIC ACID [Suspect]
     Active Substance: ZOLEDRONIC ACID
     Dosage: UNK
     Route: 065
  35. ZOLEDRONIC ACID [Suspect]
     Active Substance: ZOLEDRONIC ACID
     Indication: Invasive ductal breast carcinoma
     Dosage: UNK QCYCLE
     Route: 065
     Dates: start: 2008
  36. LETROZOLE [Concomitant]
     Active Substance: LETROZOLE
     Indication: Metastases to bone
     Dosage: UNK
     Route: 042

REACTIONS (8)
  - Invasive ductal breast carcinoma [Unknown]
  - Metastases to bone marrow [Unknown]
  - Anaemia [Unknown]
  - Malignant neoplasm progression [Unknown]
  - Malignant neoplasm progression [Unknown]
  - Thrombocytopenia [Unknown]
  - Product use in unapproved indication [Unknown]
  - Disease progression [Unknown]

NARRATIVE: CASE EVENT DATE: 20080101
